FAERS Safety Report 10189414 (Version 1)
Quarter: 2014Q2

REPORT INFORMATION
  Report Type: Spontaneous
  Country: DE (occurrence: DE)
  Receive Date: 20140522
  Receipt Date: 20140522
  Transmission Date: 20141212
  Serious: Yes (Hospitalization, Other)
  Sender: FDA-Public Use
  Company Number: DE-ASTELLAS-2014EU006404

PATIENT
  Age: 59 Year
  Sex: Female

DRUGS (2)
  1. TACROLIMUS [Suspect]
     Indication: LUNG TRANSPLANT
     Dosage: UNK UNK, UNKNOWN FREQ.
     Route: 065
  2. MYCOPHENOLIC ACID [Suspect]
     Indication: IMMUNOSUPPRESSION
     Dosage: UNK UNK, UNKNOWN FREQ.
     Route: 065

REACTIONS (4)
  - Renal failure chronic [Unknown]
  - Non-small cell lung cancer [Unknown]
  - Lung infection [Unknown]
  - Off label use [Unknown]
